FAERS Safety Report 15245893 (Version 1)
Quarter: 2018Q3

REPORT INFORMATION
  Report Type: Report from Study
  Country: FR (occurrence: FR)
  Receive Date: 20180806
  Receipt Date: 20180806
  Transmission Date: 20181010
  Serious: Yes (Other)
  Sender: FDA-Public Use
  Company Number: FR-PFIZER INC-2018307278

PATIENT
  Weight: 39 kg

DRUGS (17)
  1. MITOXANTRONE [Suspect]
     Active Substance: MITOXANTRONE HYDROCHLORIDE
     Indication: ACUTE MYELOID LEUKAEMIA
     Dosage: 12 MG/M2, 2X/DAY
     Route: 042
     Dates: start: 20180626, end: 20180629
  2. MORPHINE [Concomitant]
     Active Substance: MORPHINE
     Indication: PAIN
     Dosage: UNK
     Dates: start: 20180627
  3. TAZOCILLINE [Concomitant]
     Active Substance: PIPERACILLIN SODIUM\TAZOBACTAM SODIUM
     Dosage: 2.4 G, 2X/DAY
     Dates: start: 20180626
  4. VANCOMYCIN [Concomitant]
     Active Substance: VANCOMYCIN
     Dosage: 2.0 G, 2X/DAY
     Dates: start: 20180626
  5. SPASFON (PHLOROGLUCINOL\TRIMETHYLPHLOROGLUCINOL) [Concomitant]
     Active Substance: PHLOROGLUCINOL\1,3,5-TRIMETHOXYBENZENE
     Dosage: 80.0 MG, 2X/DAY
     Dates: start: 20180627
  6. PANTOPRAZOLE [Concomitant]
     Active Substance: PANTOPRAZOLE
     Dosage: 40.0 MG, 2X/DAY
     Dates: start: 20180627
  7. VITAMIN K [Concomitant]
     Active Substance: PHYTONADIONE
     Dosage: 18 ML, 2X/DAY
     Dates: start: 20180730
  8. EXACYL [Concomitant]
     Active Substance: TRANEXAMIC ACID
     Dosage: 380.0 MG, 2X/DAY
     Dates: start: 20180628
  9. FUNGIZONE [Concomitant]
     Active Substance: AMPHOTERICIN B
     Dosage: 18 ML, 2X/DAY
     Dates: start: 20180730
  10. PERFALGAN [Concomitant]
     Active Substance: ACETAMINOPHEN
     Dosage: 1.6 G, 2X/DAY
     Dates: start: 20180626
  11. ZOFRAN [Concomitant]
     Active Substance: ONDANSETRON HYDROCHLORIDE
     Dosage: 16.0 MG, 2X/DAY
     Dates: start: 20180627
  12. PLITICAN [Concomitant]
     Active Substance: ALIZAPRIDE HYDROCHLORIDE
     Dosage: 120 MG, 2X/DAY
     Dates: start: 20180627
  13. BACTRIM [Concomitant]
     Active Substance: SULFAMETHOXAZOLE\TRIMETHOPRIM
     Dosage: 800 MG, 2X/DAY
     Dates: start: 20180627
  14. LOXEN [Concomitant]
     Dosage: 30 MG, 2X/DAY
     Dates: start: 20180627
  15. AMBISONE [Concomitant]
     Active Substance: AMPHOTERICIN B
     Dosage: 40.0 MG, 2X/DAY
  16. GEMTUZUMAB OZOGAMICIN [Suspect]
     Active Substance: GEMTUZUMAB OZOGAMICIN
     Indication: ACUTE MYELOID LEUKAEMIA
     Dosage: 3 MG/M2, UNK
     Route: 042
     Dates: start: 20180629, end: 20180705
  17. ACUPAN [Concomitant]
     Active Substance: NEFOPAM HYDROCHLORIDE
     Dosage: 40 MG, 2X/DAY
     Dates: start: 20180626

REACTIONS (2)
  - Decreased appetite [Not Recovered/Not Resolved]
  - Mucosal inflammation [Not Recovered/Not Resolved]

NARRATIVE: CASE EVENT DATE: 20180716
